FAERS Safety Report 14974140 (Version 1)
Quarter: 2018Q2

REPORT INFORMATION
  Report Type: Spontaneous
  Country: CN (occurrence: CN)
  Receive Date: 20180605
  Receipt Date: 20180605
  Transmission Date: 20180711
  Serious: Yes (Hospitalization, Other)
  Sender: FDA-Public Use
  Company Number: CN-PFIZER INC-2018223143

PATIENT
  Age: 73 Year
  Sex: Male
  Weight: 70 kg

DRUGS (3)
  1. WARFARIN SODIUM. [Suspect]
     Active Substance: WARFARIN SODIUM
     Indication: COAGULOPATHY
     Dosage: 3 MG, 1X/DAY
     Route: 048
     Dates: start: 20180317, end: 20180320
  2. LIPITOR [Suspect]
     Active Substance: ATORVASTATIN CALCIUM
     Indication: CEREBRAL INFARCTION
     Dosage: 20 MG, 1X/DAY
     Route: 048
     Dates: start: 20180317, end: 20180323
  3. CORDARONE [Suspect]
     Active Substance: AMIODARONE HYDROCHLORIDE
     Indication: ATRIAL FIBRILLATION
     Dosage: 300 MG, 1X/DAY
     Route: 042
     Dates: start: 20180319, end: 20180323

REACTIONS (6)
  - Hepatic function abnormal [Recovering/Resolving]
  - Acute hepatic failure [Unknown]
  - Metabolic alkalosis [Unknown]
  - Haematuria [Recovering/Resolving]
  - Respiratory acidosis [Unknown]
  - Coagulopathy [Unknown]

NARRATIVE: CASE EVENT DATE: 20180319
